FAERS Safety Report 9869327 (Version 1)
Quarter: 2014Q1

REPORT INFORMATION
  Report Type: Spontaneous
  Country: US (occurrence: US)
  Receive Date: 20140205
  Receipt Date: 20140205
  Transmission Date: 20141002
  Serious: Yes (Other)
  Sender: FDA-Public Use
  Company Number: US-JNJFOC-20140117874

PATIENT
  Sex: Male
  Weight: 84.55 kg

DRUGS (8)
  1. ZYTIGA [Suspect]
     Indication: PRODUCT USED FOR UNKNOWN INDICATION
     Route: 048
  2. PREDNISONE [Concomitant]
     Route: 065
  3. DILANTIN [Concomitant]
     Route: 065
  4. PROTONIX [Concomitant]
     Route: 065
  5. CALCIUM AND VITAMIN D [Concomitant]
     Route: 065
  6. FERROUS SULFATE [Concomitant]
     Route: 065
  7. LORAZEPAM [Concomitant]
     Route: 065
  8. XGEVA [Concomitant]
     Route: 065

REACTIONS (1)
  - Osteonecrosis of jaw [Unknown]
